FAERS Safety Report 23698367 (Version 1)
Quarter: 2024Q2

REPORT INFORMATION
  Report Type: Spontaneous
  Country: US (occurrence: None)
  Receive Date: 20240401
  Receipt Date: 20240401
  Transmission Date: 20240715
  Serious: Yes (Disabling)
  Sender: FDA-Public Use
  Company Number: None

PATIENT
  Age: 75 Year
  Sex: Female
  Weight: 87.54 kg

DRUGS (6)
  1. REPATHA [Suspect]
     Active Substance: EVOLOCUMAB
     Indication: Blood cholesterol increased
     Dosage: OTHER QUANTITY : 3 INJECTIONS;?OTHER FREQUENCY : OTHER;?
     Route: 058
     Dates: start: 20240112
  2. LEVOTHYROXINE [Concomitant]
     Active Substance: LEVOTHYROXINE\LEVOTHYROXINE SODIUM
  3. LISINOPRIL [Concomitant]
     Active Substance: LISINOPRIL
  4. WOMEN^S MULTI-VITAMIN [Concomitant]
  5. VITAMIN D3 [Concomitant]
     Active Substance: CHOLECALCIFEROL
  6. MAGNESIUM [Concomitant]
     Active Substance: MAGNESIUM

REACTIONS (8)
  - Pain in extremity [None]
  - Groin pain [None]
  - Myalgia [None]
  - Vision blurred [None]
  - Memory impairment [None]
  - Gait disturbance [None]
  - Muscular weakness [None]
  - Insomnia [None]

NARRATIVE: CASE EVENT DATE: 20240203
